FAERS Safety Report 21142191 (Version 2)
Quarter: 2022Q3

REPORT INFORMATION
  Report Type: Spontaneous
  Country: US (occurrence: US)
  Receive Date: 20220728
  Receipt Date: 20220909
  Transmission Date: 20221027
  Serious: No
  Sender: FDA-Public Use
  Company Number: US-GSKCCFUS-Case-01446195_AE-82945

PATIENT
  Sex: Male
  Weight: 225 kg

DRUGS (1)
  1. NUCALA [Suspect]
     Active Substance: MEPOLIZUMAB
     Indication: Nasal polyps
     Dosage: 100 MCG/ML
     Route: 058
     Dates: start: 202206

REACTIONS (5)
  - Wrong technique in device usage process [Recovered/Resolved]
  - Exposure via skin contact [Unknown]
  - Product dose omission issue [Unknown]
  - Therapeutic product effect delayed [Unknown]
  - Accidental exposure to product [Unknown]
